FAERS Safety Report 7592036-7 (Version None)
Quarter: 2011Q2

REPORT INFORMATION
  Report Type: 
  Country: None (occurrence: None)
  Receive Date: 20110628
  Receipt Date: 20110621
  Transmission Date: 20111010
  Serious: Yes (Hospitalization, Other)
  Sender: FDA-Public Use
  Company Number: 2011SP028928

PATIENT
  Age: 55 Year
  Sex: Male

DRUGS (7)
  1. ALBUTEROL [Concomitant]
  2. MIRTAZAPINE [Suspect]
     Indication: DEPRESSION
     Dosage: 15 MG; QD; PO
     Route: 048
     Dates: start: 20110424
  3. ESLICARBAZEPINE ACETATE [Suspect]
     Indication: EPILEPSY
     Dosage: 800 MG' QD; PO
     Route: 048
     Dates: start: 20110505
  4. SERETIDE [Concomitant]
  5. ALLOPURINOL [Concomitant]
  6. KEPPRA [Concomitant]
  7. CITALOPRAM HYDROBROMIDE [Concomitant]

REACTIONS (5)
  - SYNCOPE [None]
  - PALPITATIONS [None]
  - ORTHOSTATIC HYPOTENSION [None]
  - DIZZINESS [None]
  - DYSPNOEA [None]
